FAERS Safety Report 16129542 (Version 1)
Quarter: 2019Q1

REPORT INFORMATION
  Report Type: Report from Study
  Country: BR (occurrence: BR)
  Receive Date: 20190328
  Receipt Date: 20190328
  Transmission Date: 20190418
  Serious: Yes (Hospitalization, Other)
  Sender: FDA-Public Use
  Company Number: BR-JNJFOC-20181127211

PATIENT
  Age: 55 Year
  Sex: Female

DRUGS (6)
  1. STELARA [Suspect]
     Active Substance: USTEKINUMAB
     Indication: CROHN^S DISEASE
     Route: 042
     Dates: start: 20180712
  2. STELARA [Suspect]
     Active Substance: USTEKINUMAB
     Indication: CROHN^S DISEASE
     Route: 042
  3. STELARA [Suspect]
     Active Substance: USTEKINUMAB
     Indication: CROHN^S DISEASE
     Route: 042
  4. ROCEFIN [Concomitant]
     Active Substance: CEFTRIAXONE SODIUM
  5. PREDNISONE. [Concomitant]
     Active Substance: PREDNISONE
  6. METRONIDAZOLE. [Concomitant]
     Active Substance: METRONIDAZOLE

REACTIONS (8)
  - Diarrhoea [Not Recovered/Not Resolved]
  - Abdominal pain [Unknown]
  - Pyrexia [Not Recovered/Not Resolved]
  - Laboratory test abnormal [Unknown]
  - Product dose omission [Unknown]
  - Mucous stools [Unknown]
  - Intestinal fistula [Recovering/Resolving]
  - Abdominal wall abscess [Unknown]

NARRATIVE: CASE EVENT DATE: 2018
